FAERS Safety Report 5585249-7 (Version None)
Quarter: 2008Q1

REPORT INFORMATION
  Report Type: 
  Country: None (occurrence: None)
  Receive Date: 20080104
  Receipt Date: 20080104
  Transmission Date: 20080703
  Serious: Yes (Hospitalization)
  Sender: FDA-Public Use
  Company Number: None

PATIENT
  Age: 13 Year
  Sex: Male
  Weight: 52.1637 kg

DRUGS (1)
  1. SULFAMETTHOXAZOLE AND TRIMETHOPRIM [Suspect]
     Indication: STAPHYLOCOCCAL INFECTION
     Dates: start: 20071219, end: 20071228

REACTIONS (4)
  - LIVER FUNCTION TEST ABNORMAL [None]
  - ORAL MUCOSAL PETECHIAE [None]
  - PYREXIA [None]
  - RASH GENERALISED [None]
